FAERS Safety Report 14245523 (Version 1)
Quarter: 2017Q4

REPORT INFORMATION
  Report Type: Spontaneous
  Country: GB (occurrence: GB)
  Receive Date: 20171203
  Receipt Date: 20171203
  Transmission Date: 20180321
  Serious: Yes (Other)
  Sender: FDA-Public Use
  Company Number: GB-MYLANLABS-2017M1075052

PATIENT
  Age: 72 Year
  Sex: Female
  Weight: 52 kg

DRUGS (4)
  1. DOXYCYCLINE. [Suspect]
     Active Substance: DOXYCYCLINE
     Indication: COUGH
     Route: 048
  2. BISOLTUSSIN [Suspect]
     Active Substance: DEXTROMETHORPHAN HYDROBROMIDE
     Indication: LOWER RESPIRATORY TRACT INFECTION
     Dosage: LIQUID
     Route: 048
  3. SPIRIVA [Concomitant]
     Active Substance: TIOTROPIUM BROMIDE MONOHYDRATE
  4. SERETIDE [Concomitant]
     Active Substance: FLUTICASONE PROPIONATE\SALMETEROL XINAFOATE

REACTIONS (3)
  - Burning sensation [Recovered/Resolved]
  - Drug effect decreased [Recovered/Resolved]
  - Pain [Recovered/Resolved]

NARRATIVE: CASE EVENT DATE: 20171027
